FAERS Safety Report 15341985 (Version 1)
Quarter: 2018Q3

REPORT INFORMATION
  Report Type: Spontaneous
  Country: US (occurrence: US)
  Receive Date: 20180828
  Receipt Date: 20180828
  Transmission Date: 20181010
  Serious: Yes (Disabling)
  Sender: FDA-Public Use
  Company Number: None

PATIENT
  Age: 36 Year
  Sex: Female
  Weight: 90 kg

DRUGS (7)
  1. TYLENOL [Concomitant]
     Active Substance: ACETAMINOPHEN
  2. HUMIRA [Concomitant]
     Active Substance: ADALIMUMAB
  3. TACLONEX [Concomitant]
     Active Substance: BETAMETHASONE DIPROPIONATE\CALCIPOTRIENE\CALCIPOTRIENE HYDRATE
  4. PRENATAL VITAMIN [Concomitant]
     Active Substance: VITAMINS
  5. TUMS [Concomitant]
     Active Substance: CALCIUM CARBONATE
  6. LEVOTHYROXINE. [Concomitant]
     Active Substance: LEVOTHYROXINE
  7. HUMIRA [Suspect]
     Active Substance: ADALIMUMAB
     Indication: COLITIS ULCERATIVE
     Dosage: ?          OTHER FREQUENCY:EVERY 2 WEEKS;?
     Route: 058

REACTIONS (6)
  - Rash [None]
  - Drug ineffective [None]
  - Pustular psoriasis [None]
  - Eczema [None]
  - Psoriasis [None]
  - Skin disorder [None]

NARRATIVE: CASE EVENT DATE: 20171220
